FAERS Safety Report 8091386-8 (Version None)
Quarter: 2012Q1

REPORT INFORMATION
  Report Type: 
  Country: None (occurrence: None)
  Receive Date: 20120129
  Receipt Date: 20111031
  Transmission Date: 20120608
  Serious: No
  Sender: FDA-Public Use
  Company Number: US-ABBOTT-11P-163-0870616-00

PATIENT
  Sex: Male
  Weight: 83.99 kg

DRUGS (4)
  1. NELTREXONE [Concomitant]
     Indication: CROHN'S DISEASE
  2. MULTI-VITAMIN [Concomitant]
     Indication: VITAMIN SUPPLEMENTATION
  3. COD LIVER OIL [Concomitant]
     Indication: PRODUCT USED FOR UNKNOWN INDICATION
  4. HUMIRA [Suspect]
     Indication: CROHN'S DISEASE
     Dosage: 160 MILLIGRAMS LOADING DOSE
     Dates: start: 20111019

REACTIONS (1)
  - ARTHRALGIA [None]
